FAERS Safety Report 20127935 (Version 1)
Quarter: 2021Q4

REPORT INFORMATION
  Report Type: Other
  Country: US (occurrence: None)
  Receive Date: 20211129
  Receipt Date: 20211129
  Transmission Date: 20220303
  Serious: No
  Sender: FDA-Public Use
  Company Number: US-ROCHE-2819653

PATIENT
  Age: 49 Year
  Sex: Female

DRUGS (4)
  1. TRASTUZUMAB [Suspect]
     Active Substance: TRASTUZUMAB
     Indication: Adenocarcinoma metastatic
     Route: 065
     Dates: start: 20180510, end: 20190115
  2. PERTUZUMAB [Suspect]
     Active Substance: PERTUZUMAB
     Indication: Adenocarcinoma metastatic
     Route: 065
     Dates: start: 20180510, end: 20190115
  3. ADO-TRASTUZUMAB EMTANSINE [Suspect]
     Active Substance: ADO-TRASTUZUMAB EMTANSINE
     Indication: Adenocarcinoma metastatic
     Route: 065
     Dates: start: 20190226, end: 20190723
  4. NERATINIB [Suspect]
     Active Substance: NERATINIB
     Indication: Adenocarcinoma metastatic
     Route: 065
     Dates: start: 20190815, end: 20191030

REACTIONS (1)
  - Drug resistance [Unknown]
